FAERS Safety Report 21767565 (Version 1)
Quarter: 2022Q4

REPORT INFORMATION
  Report Type: Report from Study
  Country: US (occurrence: US)
  Receive Date: 20221222
  Receipt Date: 20221222
  Transmission Date: 20230113
  Serious: Yes (Other)
  Sender: FDA-Public Use
  Company Number: US-HBP-2022US028031

PATIENT
  Age: 78 Year
  Sex: Male

DRUGS (2)
  1. VALCHLOR [Suspect]
     Active Substance: MECHLORETHAMINE
     Indication: Cutaneous T-cell lymphoma
     Dosage: THIN FILM, QD
     Route: 061
     Dates: start: 2021, end: 2021
  2. VALCHLOR [Suspect]
     Active Substance: MECHLORETHAMINE
     Dosage: THIN FILM, QD
     Route: 061
     Dates: start: 202211, end: 202211

REACTIONS (6)
  - Neoplasm malignant [Unknown]
  - Cancer surgery [Unknown]
  - Application site pain [Recovered/Resolved]
  - Application site hyperaesthesia [Unknown]
  - Application site mass [Unknown]
  - Application site vesicles [Unknown]

NARRATIVE: CASE EVENT DATE: 20221101
